FAERS Safety Report 22617448 (Version 2)
Quarter: 2024Q3

REPORT INFORMATION
  Report Type: Spontaneous
  Country: US (occurrence: US)
  Receive Date: 20230620
  Receipt Date: 20240712
  Transmission Date: 20241017
  Serious: No
  Sender: PIERRE FABRE MEDICAMENT
  Company Number: US-PFM-2022-04592

PATIENT
  Sex: Female
  Weight: 7.57 kg

DRUGS (1)
  1. HEMANGEOL [Suspect]
     Active Substance: PROPRANOLOL HYDROCHLORIDE
     Indication: Haemangioma
     Dosage: 2.5 ML, BID (2/DAY)
     Route: 048

REACTIONS (7)
  - Ear infection [Unknown]
  - Retching [Unknown]
  - Abnormal behaviour [Unknown]
  - Lethargy [Unknown]
  - Gastrooesophageal reflux disease [Unknown]
  - Vomiting [Unknown]
  - Wrong technique in product usage process [Unknown]
